FAERS Safety Report 19067930 (Version 1)
Quarter: 2021Q1

REPORT INFORMATION
  Report Type: Spontaneous
  Country: US (occurrence: US)
  Receive Date: 20210326
  Receipt Date: 20210326
  Transmission Date: 20210420
  Serious: No
  Sender: FDA-Public Use
  Company Number: None

PATIENT
  Sex: Male

DRUGS (9)
  1. MODAFINIL 100MG [Concomitant]
     Active Substance: MODAFINIL
     Dates: start: 20190712
  2. VENLFAXINE 150 MG [Concomitant]
     Dates: start: 20190613
  3. AMPYRA [Suspect]
     Active Substance: DALFAMPRIDINE
     Indication: MULTIPLE SCLEROSIS
     Route: 048
     Dates: start: 20191127
  4. HYDROCHLOROTHIAZIDE 25 MG [Concomitant]
     Active Substance: HYDROCHLOROTHIAZIDE
     Dates: start: 20190613
  5. CABERGOLINE 0.5 MG [Concomitant]
     Dates: start: 20180905
  6. TESTOSTERONE 200MG/ML [Concomitant]
     Dates: start: 20190520
  7. ATORVASTAIN 80 MG [Concomitant]
     Dates: start: 20191219
  8. FINASTERIDE 5MG [Concomitant]
     Active Substance: FINASTERIDE
     Dates: start: 20201228
  9. GABAPENTIN 100 [Concomitant]
     Dates: start: 20200710

REACTIONS (1)
  - Fall [None]
